FAERS Safety Report 18523389 (Version 2)
Quarter: 2020Q4

REPORT INFORMATION
  Report Type: Spontaneous
  Country: US (occurrence: US)
  Receive Date: 20201119
  Receipt Date: 20201124
  Transmission Date: 20210114
  Serious: No
  Sender: FDA-Public Use
  Company Number: US-PFIZER INC-2020453329

PATIENT
  Age: 1 Year
  Sex: Male

DRUGS (1)
  1. MEKTOVI [Suspect]
     Active Substance: BINIMETINIB
     Indication: NEUROFIBROMATOSIS
     Dosage: UNK
     Dates: start: 2020

REACTIONS (4)
  - Diarrhoea [Unknown]
  - Nail bed infection [Unknown]
  - Off label use [Unknown]
  - Infantile vomiting [Unknown]

NARRATIVE: CASE EVENT DATE: 20201116
